FAERS Safety Report 12714730 (Version 2)
Quarter: 2017Q1

REPORT INFORMATION
  Report Type: Report from Study
  Country: None (occurrence: BR)
  Receive Date: 20160905
  Receipt Date: 20170216
  Transmission Date: 20170428
  Serious: Yes (Hospitalization, Other)
  Sender: FDA-Public Use
  Company Number: BR-ABBVIE-16K-020-1714733-00

PATIENT
  Age: 49 Year
  Sex: Female
  Weight: 55 kg

DRUGS (9)
  1. HUMIRA [Suspect]
     Active Substance: ADALIMUMAB
     Route: 058
     Dates: start: 20160620
  2. SALINE SOLUTION/MAGNESIUM [Concomitant]
     Indication: IMMUNODEFICIENCY
     Route: 042
     Dates: start: 20160620, end: 20160624
  3. SALINE SOLUTION/ACETYLCYSTEINE [Concomitant]
     Indication: IMMUNODEFICIENCY
     Route: 042
     Dates: start: 20160620, end: 20160624
  4. HUMIRA [Suspect]
     Active Substance: ADALIMUMAB
     Route: 058
  5. NOVALGINA [Suspect]
     Active Substance: METAMIZOLE SODIUM
     Indication: PYREXIA
     Dosage: 2 OR 3 TIMES DAILY
     Route: 042
     Dates: start: 20160601, end: 20160604
  6. SALINE SOLUTION/CALCIUM [Concomitant]
     Indication: IMMUNODEFICIENCY
     Route: 042
     Dates: start: 20160620, end: 20160624
  7. SALINE SOLUTION/VITAMIN C [Concomitant]
     Indication: IMMUNODEFICIENCY
     Route: 042
     Dates: start: 20160620, end: 20160624
  8. HUMIRA [Suspect]
     Active Substance: ADALIMUMAB
     Indication: COLITIS ULCERATIVE
     Dosage: LOADING DOSE, WEEK 0
     Route: 058
     Dates: start: 20160328, end: 20160328
  9. HUMIRA [Suspect]
     Active Substance: ADALIMUMAB
     Route: 058
     Dates: start: 2016, end: 2016

REACTIONS (29)
  - Gallbladder perforation [Recovering/Resolving]
  - Peritonitis [Unknown]
  - Nausea [Recovered/Resolved]
  - Somnolence [Recovering/Resolving]
  - Injection site mass [Recovered/Resolved]
  - Alopecia [Recovering/Resolving]
  - Nausea [Unknown]
  - Injection site mass [Unknown]
  - Scar pain [Unknown]
  - Abnormal faeces [Unknown]
  - Injection site bruising [Unknown]
  - Gastrointestinal infection [Unknown]
  - Hypotension [Unknown]
  - Diarrhoea [Unknown]
  - Drug ineffective [Not Recovered/Not Resolved]
  - Injection site pain [Recovered/Resolved]
  - Injection site pain [Unknown]
  - Injection site inflammation [Unknown]
  - Injection site bruising [Recovered/Resolved]
  - Injection site bruising [Recovered/Resolved]
  - Injection site pain [Unknown]
  - Condition aggravated [Unknown]
  - Pyrexia [Recovered/Resolved]
  - Gastrointestinal infection [Unknown]
  - Frequent bowel movements [Not Recovered/Not Resolved]
  - Abdominal pain [Unknown]
  - Intra-abdominal fluid collection [Unknown]
  - Pyrexia [Recovering/Resolving]
  - Malaise [Recovered/Resolved]

NARRATIVE: CASE EVENT DATE: 2016
